FAERS Safety Report 12781533 (Version 2)
Quarter: 2016Q4

REPORT INFORMATION
  Report Type: Spontaneous
  Country: US (occurrence: US)
  Receive Date: 20160926
  Receipt Date: 20161007
  Transmission Date: 20170207
  Serious: Yes (Other)
  Sender: FDA-Public Use
  Company Number: US-PFIZER INC-2016443277

PATIENT
  Sex: Female

DRUGS (1)
  1. LEVOXYL [Suspect]
     Active Substance: LEVOTHYROXINE SODIUM
     Dosage: UNK
     Dates: start: 2014, end: 20160726

REACTIONS (12)
  - Abdominal distension [Unknown]
  - Nausea [Unknown]
  - Malaise [Unknown]
  - Fatigue [Unknown]
  - Visual impairment [Unknown]
  - Insomnia [Unknown]
  - Coeliac disease [Unknown]
  - Gastrointestinal disorder [Unknown]
  - Bone pain [Unknown]
  - Asthenia [Unknown]
  - Intentional product misuse [Unknown]
  - Eructation [Unknown]
